FAERS Safety Report 16351435 (Version 3)
Quarter: 2020Q1

REPORT INFORMATION
  Report Type: Spontaneous
  Country: US (occurrence: US)
  Receive Date: 20190524
  Receipt Date: 20200108
  Transmission Date: 20200409
  Serious: No
  Sender: FDA-Public Use
  Company Number: US-BIOGEN-2019BI00740127

PATIENT
  Age: 43 Year
  Sex: Female

DRUGS (1)
  1. TYSABRI [Suspect]
     Active Substance: NATALIZUMAB
     Indication: MULTIPLE SCLEROSIS
     Route: 065
     Dates: start: 20190322

REACTIONS (9)
  - Mental impairment [Unknown]
  - Bronchitis [Recovered/Resolved]
  - Peripheral swelling [Unknown]
  - Eosinophil count increased [Unknown]
  - Memory impairment [Not Recovered/Not Resolved]
  - Aphasia [Unknown]
  - Pneumonia [Recovered/Resolved]
  - Decreased immune responsiveness [Not Recovered/Not Resolved]
  - Respiratory symptom [Recovered/Resolved]

NARRATIVE: CASE EVENT DATE: 2019
